FAERS Safety Report 7124981-0 (Version None)
Quarter: 2010Q4

REPORT INFORMATION
  Report Type: 
  Country: None (occurrence: None)
  Receive Date: 20101129
  Receipt Date: 20101116
  Transmission Date: 20110411
  Serious: Yes (Other)
  Sender: FDA-Public Use
  Company Number: HR-ASTRAZENECA-2010SE54851

PATIENT
  Age: 66 Year
  Sex: Female
  Weight: 80 kg

DRUGS (9)
  1. CRESTOR [Suspect]
     Indication: HYPERLIPIDAEMIA
     Route: 048
     Dates: start: 20100911, end: 20100921
  2. CRESTOR [Suspect]
     Route: 048
     Dates: start: 20101101, end: 20101104
  3. NOVOMIX [Concomitant]
     Indication: DIABETES MELLITUS
     Dosage: 30, 30, 40
     Dates: start: 19900101
  4. ZYLLT [Concomitant]
     Indication: ANGINA PECTORIS
     Route: 048
     Dates: start: 20070101
  5. OLICARD [Concomitant]
     Indication: CARDIOMYOPATHY
     Route: 048
     Dates: start: 20070101
  6. OMACOR [Concomitant]
     Indication: HYPERLIPIDAEMIA
     Route: 048
     Dates: start: 20070101
  7. RUDAKOL [Concomitant]
     Indication: GASTROINTESTINAL PAIN
     Route: 048
     Dates: start: 20070101
  8. SIOFOR [Concomitant]
     Indication: DIABETES MELLITUS
     Route: 048
     Dates: start: 20070101
  9. CONCOR COR [Concomitant]
     Indication: HYPERTENSION
     Route: 048
     Dates: start: 20070101

REACTIONS (3)
  - ABDOMINAL DISTENSION [None]
  - NAUSEA [None]
  - VOMITING [None]
